FAERS Safety Report 15679963 (Version 1)
Quarter: 2018Q4

REPORT INFORMATION
  Report Type: Spontaneous
  Country: US (occurrence: US)
  Receive Date: 20181203
  Receipt Date: 20181203
  Transmission Date: 20190205
  Serious: No
  Sender: FDA-Public Use
  Company Number: US-LEXICON PHARMACEUTICALS, INC-18-1606-01474

PATIENT
  Age: 62 Year
  Sex: Female

DRUGS (1)
  1. TELOTRISTAT ETHYL [Suspect]
     Active Substance: TELOTRISTAT ETHYL
     Indication: CARCINOID SYNDROME
     Route: 048
     Dates: start: 20181103

REACTIONS (9)
  - Chest pain [Unknown]
  - Eructation [Unknown]
  - Flatulence [Unknown]
  - Hypertension [Unknown]
  - Nausea [Unknown]
  - Heart rate irregular [Unknown]
  - Hiccups [Unknown]
  - Faeces hard [Recovering/Resolving]
  - Headache [Unknown]

NARRATIVE: CASE EVENT DATE: 201811
